FAERS Safety Report 11289240 (Version 1)
Quarter: 2015Q3

REPORT INFORMATION
  Report Type: Spontaneous
  Country: JP (occurrence: JP)
  Receive Date: 20150721
  Receipt Date: 20150721
  Transmission Date: 20151125
  Serious: Yes (Other)
  Sender: FDA-Public Use
  Company Number: JP-PFIZER INC-2015236790

PATIENT
  Sex: Female

DRUGS (2)
  1. HALCION [Suspect]
     Active Substance: TRIAZOLAM
     Dosage: 2 DF, 1X/DAY, BEFORE BEDTIME
     Route: 048
     Dates: start: 20150706
  2. HALCION [Suspect]
     Active Substance: TRIAZOLAM
     Dosage: 0.5 UNK, UNK
     Dates: start: 20150714

REACTIONS (10)
  - Dependence [Unknown]
  - Somnambulism [Unknown]
  - Dyspnoea [Unknown]
  - Drug withdrawal syndrome [Unknown]
  - Tongue paralysis [Unknown]
  - Hallucination [Unknown]
  - Pruritus [Unknown]
  - Dysarthria [Unknown]
  - Dysgeusia [Unknown]
  - Chest discomfort [Unknown]

NARRATIVE: CASE EVENT DATE: 201507
